FAERS Safety Report 7572851-6 (Version None)
Quarter: 2011Q2

REPORT INFORMATION
  Report Type: 
  Country: None (occurrence: None)
  Receive Date: 20110525
  Receipt Date: 20110324
  Transmission Date: 20111010
  Serious: Yes (Hospitalization)
  Sender: FDA-Public Use
  Company Number: 324908

PATIENT
  Age: 70 Year
  Sex: Male
  Weight: 95.2 kg

DRUGS (2)
  1. VICTOZA [Suspect]
     Indication: TYPE 2 DIABETES MELLITUS
     Dosage: 1.2 MG, QD, SUBCUTANEOUS
     Route: 058
     Dates: start: 20110219, end: 20110223
  2. NOVOFINE 32 (NEEDLE) [Concomitant]

REACTIONS (1)
  - PANCREATITIS [None]
